FAERS Safety Report 11287563 (Version 2)
Quarter: 2015Q3

REPORT INFORMATION
  Report Type: Report from Study
  Country: DE (occurrence: DE)
  Receive Date: 20150721
  Receipt Date: 20150821
  Transmission Date: 20151125
  Serious: Yes (Death, Other)
  Sender: FDA-Public Use
  Company Number: DE-CELGENE-062-21880-13022863

PATIENT

DRUGS (2)
  1. REVLIMID [Suspect]
     Active Substance: LENALIDOMIDE
     Indication: MYELODYSPLASTIC SYNDROME
     Dosage: 10 MILLIGRAM
     Route: 048
  2. RED BLOOD CELLS [Concomitant]
     Active Substance: HUMAN RED BLOOD CELL
     Indication: ANAEMIA
     Route: 065

REACTIONS (12)
  - Nausea [Unknown]
  - Muscle spasms [Unknown]
  - Myelodysplastic syndrome [Unknown]
  - No therapeutic response [Unknown]
  - Acute myeloid leukaemia [Unknown]
  - Constipation [Unknown]
  - Refractory anaemia with an excess of blasts [Unknown]
  - Nasopharyngitis [Unknown]
  - Death [Fatal]
  - Diarrhoea [Unknown]
  - Fatigue [Unknown]
  - Dizziness [Unknown]
